FAERS Safety Report 6839504-0 (Version None)
Quarter: 2010Q3

REPORT INFORMATION
  Report Type: 
  Country: None (occurrence: None)
  Receive Date: 20100714
  Receipt Date: 20091020
  Transmission Date: 20110219
  Serious: No
  Sender: FDA-Public Use
  Company Number: A0812770A

PATIENT

DRUGS (1)
  1. FLOVENT [Suspect]
     Route: 055

REACTIONS (2)
  - HYPERSENSITIVITY [None]
  - WHEEZING [None]
